FAERS Safety Report 7573030-9 (Version None)
Quarter: 2011Q2

REPORT INFORMATION
  Report Type: 
  Country: None (occurrence: None)
  Receive Date: 20110627
  Receipt Date: 20110617
  Transmission Date: 20111010
  Serious: No
  Sender: FDA-Public Use
  Company Number: US-JNJFOC-20110609251

PATIENT
  Sex: Male

DRUGS (2)
  1. FENTANYL-100 [Suspect]
     Indication: RADICULAR PAIN
     Route: 062
     Dates: start: 20110529
  2. FENTANYL-100 [Suspect]
     Indication: RADICULAR PAIN
     Route: 062
     Dates: start: 20100101, end: 20110529

REACTIONS (2)
  - WRONG TECHNIQUE IN DRUG USAGE PROCESS [None]
  - PRODUCT ADHESION ISSUE [None]
